FAERS Safety Report 5271215-8 (Version None)
Quarter: 2007Q1

REPORT INFORMATION
  Report Type: 
  Country: None (occurrence: None)
  Receive Date: 20070315
  Receipt Date: 20070228
  Transmission Date: 20070707
  Serious: Yes (Hospitalization)
  Sender: FDA-Public Use
  Company Number: 237947

PATIENT
  Age: 50 Year
  Sex: Female

DRUGS (4)
  1. AVASTIN [Suspect]
     Indication: COLON CANCER
     Dosage: 400 MG, INTRAVENOUS
     Route: 042
     Dates: start: 20061228, end: 20070220
  2. FLUOROURACIL [Concomitant]
  3. IRINOTECAN HCL [Concomitant]
  4. LEVOLEUCOVORIN CALCIUM (LEVOLEUCOVORIN CALCIUM) [Concomitant]

REACTIONS (1)
  - ARTHRALGIA [None]
